FAERS Safety Report 16600279 (Version 1)
Quarter: 2019Q3

REPORT INFORMATION
  Report Type: Spontaneous
  Country: FR (occurrence: FR)
  Receive Date: 20190720
  Receipt Date: 20190720
  Transmission Date: 20191004
  Serious: Yes (Hospitalization, Other)
  Sender: FDA-Public Use
  Company Number: FR-AUROBINDO-AUR-APL-2019-041608

PATIENT

DRUGS (12)
  1. XYLOCAINE [Suspect]
     Active Substance: LIDOCAINE HYDROCHLORIDE
     Indication: ANAESTHESIA
     Dosage: INCONNUE
     Route: 042
     Dates: start: 20190221, end: 20190221
  2. SUFENTANIL [Suspect]
     Active Substance: SUFENTANIL
     Indication: ANALGESIC THERAPY
     Dosage: 50 MICROGRAM, ONCE A DAY
     Route: 042
     Dates: start: 20190221, end: 20190221
  3. EXACYL [Suspect]
     Active Substance: TRANEXAMIC ACID
     Indication: HAEMORRHAGE PROPHYLAXIS
     Dosage: 1 GRAM, ONCE A DAY
     Route: 042
     Dates: start: 20190221, end: 20190221
  4. ISOFUNDINE [Suspect]
     Active Substance: CALCIUM CHLORIDE\MAGNESIUM CHLORIDE\MALIC ACID\POTASSIUM CHLORIDE\SODIUM ACETATE\SODIUM CHLORIDE
     Indication: ANALGESIC THERAPY
     Dosage: UNK
     Route: 042
  5. CATAPRESSAN [Suspect]
     Active Substance: CLONIDINE
     Indication: HYPERTENSION
     Dosage: 1 DOSAGE FORM, ONCE A DAY
     Route: 042
     Dates: start: 20190221, end: 20190221
  6. DESFLURANE. [Concomitant]
     Active Substance: DESFLURANE
     Indication: ANAESTHESIA
     Dosage: INCONNUE
     Route: 055
     Dates: start: 20190221, end: 20190221
  7. MAGNESIUM [Suspect]
     Active Substance: MAGNESIUM
     Indication: ANALGESIC THERAPY
     Dosage: 3 GRAM, ONCE A DAY
     Route: 042
     Dates: start: 20190221, end: 20190221
  8. KETAMINE [Suspect]
     Active Substance: KETAMINE
     Indication: ANAESTHESIA
     Dosage: 20 MILLIGRAM, ONCE A DAY
     Route: 042
     Dates: start: 20190221, end: 20190221
  9. EPHEDRINE. [Suspect]
     Active Substance: EPHEDRINE
     Indication: PROPHYLAXIS
     Dosage: 51 MILLIGRAM, ONCE A DAY
     Route: 042
     Dates: start: 20190221, end: 20190221
  10. TRACRIUM [Suspect]
     Active Substance: ATRACURIUM BESYLATE
     Indication: ANAESTHESIA
     Dosage: 180 MILLIGRAM, ONCE A DAY
     Route: 042
     Dates: start: 20190221, end: 20190221
  11. DEXAMETHASONE. [Suspect]
     Active Substance: DEXAMETHASONE
     Indication: PROPHYLAXIS
     Dosage: 8 MILLIGRAM, ONCE A DAY
     Route: 042
     Dates: start: 20190221, end: 20190221
  12. PROPOFOL. [Suspect]
     Active Substance: PROPOFOL
     Indication: ANAESTHESIA
     Dosage: 300 MILLIGRAM, ONCE A DAY
     Route: 042
     Dates: start: 20190221, end: 20190221

REACTIONS (1)
  - Seizure [Recovered/Resolved]

NARRATIVE: CASE EVENT DATE: 20190221
